FAERS Safety Report 21703771 (Version 1)
Quarter: 2022Q4

REPORT INFORMATION
  Report Type: Spontaneous
  Country: US (occurrence: US)
  Receive Date: 20221209
  Receipt Date: 20221209
  Transmission Date: 20230112
  Serious: Yes (Death, Hospitalization, Other)
  Sender: FDA-Public Use
  Company Number: US-APOTEX-2022AP016542

PATIENT
  Age: 24 Year
  Sex: Female

DRUGS (1)
  1. ACETAMINOPHEN [Suspect]
     Active Substance: ACETAMINOPHEN
     Indication: Product used for unknown indication
     Dosage: UNK
     Route: 065

REACTIONS (14)
  - Bradycardia [Fatal]
  - Arrhythmia [Fatal]
  - Coma [Fatal]
  - Depressed level of consciousness [Fatal]
  - Respiratory depression [Fatal]
  - Metabolic acidosis [Fatal]
  - Tachycardia [Fatal]
  - Gastrointestinal haemorrhage [Fatal]
  - Haemolysis [Fatal]
  - Hypotension [Fatal]
  - Anion gap abnormal [Fatal]
  - Leukocytosis [Fatal]
  - Toxicity to various agents [Fatal]
  - Coagulopathy [Fatal]
